FAERS Safety Report 8251829-3 (Version None)
Quarter: 2012Q2

REPORT INFORMATION
  Report Type: 
  Country: None (occurrence: None)
  Receive Date: 20120402
  Receipt Date: 20120329
  Transmission Date: 20120825
  Serious: Yes (Hospitalization)
  Sender: FDA-Public Use
  Company Number: US-GILEAD-2012-0051356

PATIENT
  Sex: Male

DRUGS (11)
  1. FLUTICASONE FUROATE [Concomitant]
     Indication: RHINITIS
     Dosage: UNK
     Dates: start: 20100101
  2. LISINOPRIL [Concomitant]
     Indication: HYPERTENSION
     Dosage: UNK
     Dates: start: 20100101
  3. CETIRIZINE [Concomitant]
     Indication: RHINITIS
     Dosage: UNK
     Dates: start: 20100101
  4. LETAIRIS [Suspect]
     Indication: PULMONARY HYPERTENSION
     Dosage: 5 MG, UNK
     Route: 048
     Dates: start: 20110811
  5. LETAIRIS [Suspect]
     Indication: SARCOIDOSIS
  6. ROSUVASTATIN [Concomitant]
     Indication: HYPERCHOLESTEROLAEMIA
     Dosage: UNK
     Dates: start: 20100101
  7. ZOLPIDEM [Concomitant]
     Indication: INSOMNIA
     Dosage: UNK
     Dates: start: 20100101
  8. SODIUM CHLORIDE [Concomitant]
     Indication: RHINITIS
     Dosage: UNK
     Dates: start: 20100101
  9. SILDENAFIL [Concomitant]
     Indication: PULMONARY ARTERIAL HYPERTENSION
     Dosage: UNK
     Dates: start: 20080101
  10. LETAIRIS [Suspect]
     Indication: INTERSTITIAL LUNG DISEASE
  11. WARFARIN SODIUM [Concomitant]
     Indication: PULMONARY ARTERIAL HYPERTENSION
     Dosage: UNK
     Dates: start: 20080101

REACTIONS (4)
  - DYSPNOEA [None]
  - PNEUMONIA [None]
  - SINUS DISORDER [None]
  - ATRIAL FIBRILLATION [None]
